FAERS Safety Report 23815760 (Version 1)
Quarter: 2024Q2

REPORT INFORMATION
  Report Type: Spontaneous
  Country: CN (occurrence: CN)
  Receive Date: 20240503
  Receipt Date: 20240503
  Transmission Date: 20240716
  Serious: Yes (Other)
  Sender: FDA-Public Use
  Company Number: CN-ALCON LABORATORIES-ALC2024CN002246

PATIENT
  Age: 13 Year
  Sex: Male
  Weight: 62 kg

DRUGS (3)
  1. FLUORESCITE [Suspect]
     Active Substance: FLUORESCEIN SODIUM
     Indication: Diagnostic procedure
     Dosage: 0.300000  G QD
     Route: 042
     Dates: start: 20240419, end: 20240419
  2. INDOCYANINE GREEN [Suspect]
     Active Substance: INDOCYANINE GREEN
     Indication: Diagnostic procedure
     Dosage: 25 MG QD
     Route: 042
     Dates: start: 20240419, end: 20240419
  3. SODIUM CHLORIDE [Concomitant]
     Active Substance: SODIUM CHLORIDE
     Indication: Diagnostic procedure
     Dosage: 250 ML QD
     Route: 042
     Dates: start: 20240419, end: 20240419

REACTIONS (3)
  - Nausea [Recovering/Resolving]
  - Vomiting [Recovering/Resolving]
  - Epistaxis [Recovering/Resolving]

NARRATIVE: CASE EVENT DATE: 20240419
